FAERS Safety Report 10385089 (Version 1)
Quarter: 2014Q3

REPORT INFORMATION
  Report Type: Spontaneous
  Country: JP (occurrence: JP)
  Receive Date: 20140814
  Receipt Date: 20140814
  Transmission Date: 20150326
  Serious: Yes (Other)
  Sender: FDA-Public Use
  Company Number: PHHY2014JP098143

PATIENT
  Age: 79 Year
  Sex: Male

DRUGS (9)
  1. LANSOPRAZOLE. [Concomitant]
     Active Substance: LANSOPRAZOLE
  2. FEBURIC [Suspect]
     Active Substance: FEBUXOSTAT
     Dosage: 10 MG, UNK
  3. DOWNTENSINE [Concomitant]
  4. CRESTOR [Concomitant]
     Active Substance: ROSUVASTATIN CALCIUM
  5. TASIGNA [Suspect]
     Active Substance: NILOTINIB
     Dosage: 600 MG, DAILY
  6. CAPTOPRIL R [Concomitant]
  7. TECHNIS [Concomitant]
  8. MEXILETINE HYDROCHLORIDE. [Concomitant]
     Active Substance: MEXILETINE HYDROCHLORIDE
  9. JUVELA N [Concomitant]
     Active Substance: TOCOPHERYL NICOTINATE, D-.ALPHA.

REACTIONS (4)
  - Blood pressure increased [Unknown]
  - Atrial fibrillation [Unknown]
  - Heart rate increased [Recovering/Resolving]
  - Drug eruption [Unknown]
